FAERS Safety Report 17093174 (Version 2)
Quarter: 2021Q4

REPORT INFORMATION
  Report Type: Spontaneous
  Country: GB (occurrence: GB)
  Receive Date: 20191129
  Receipt Date: 20211028
  Transmission Date: 20220303
  Serious: Yes (Hospitalization)
  Sender: FDA-Public Use
  Company Number: None

PATIENT
  Age: 58 Year
  Sex: Male

DRUGS (2)
  1. ONDANSETRON [Suspect]
     Active Substance: ONDANSETRON
     Indication: Product used for unknown indication
     Dosage: SOLUTION FOR INJECTION AMPOULES. 4MG/2ML
     Route: 042
     Dates: start: 20191013
  2. MEROPENEM [Suspect]
     Active Substance: MEROPENEM
     Indication: Product used for unknown indication
     Dosage: 1 G
     Route: 042
     Dates: start: 20191013

REACTIONS (3)
  - Extravasation [Recovering/Resolving]
  - Peripheral swelling [Unknown]
  - Catheter site pain [Recovering/Resolving]

NARRATIVE: CASE EVENT DATE: 20191015
